FAERS Safety Report 8086812-4 (Version None)
Quarter: 2012Q1

REPORT INFORMATION
  Report Type: 
  Country: None (occurrence: None)
  Receive Date: 20120128
  Receipt Date: 20110518
  Transmission Date: 20120608
  Serious: No
  Sender: FDA-Public Use
  Company Number: US-ABBOTT-11P-163-0726786-00

PATIENT
  Age: 53 Year
  Sex: Female

DRUGS (6)
  1. LORAZEPAM [Concomitant]
     Indication: DEPRESSION
     Dosage: 1-2 DAILY
  2. VOLTAREN [Concomitant]
     Indication: ARTHRALGIA
     Dosage: GEL
  3. HUMIRA [Suspect]
     Indication: RHEUMATOID ARTHRITIS
     Dates: start: 20101201
  4. ZOLOFT [Concomitant]
     Indication: DEPRESSION
  5. PREDNISONE TAB [Concomitant]
     Indication: RHEUMATOID ARTHRITIS
  6. PLAQUENIL [Concomitant]
     Indication: RHEUMATOID ARTHRITIS

REACTIONS (1)
  - BRONCHITIS [None]
